FAERS Safety Report 21244572 (Version 2)
Quarter: 2022Q3

REPORT INFORMATION
  Report Type: Report from Study
  Country: DE (occurrence: DE)
  Receive Date: 20220823
  Receipt Date: 20220828
  Transmission Date: 20221027
  Serious: Yes (Hospitalization)
  Sender: FDA-Public Use
  Company Number: DE-BRISTOL-MYERS SQUIBB COMPANY-2022-093221

PATIENT
  Age: 83 Year
  Sex: Female

DRUGS (14)
  1. OPDIVO [Suspect]
     Active Substance: NIVOLUMAB
     Indication: Renal cell carcinoma
     Route: 042
     Dates: start: 20210929
  2. YERVOY [Suspect]
     Active Substance: IPILIMUMAB
     Indication: Renal cell carcinoma
     Route: 042
     Dates: start: 20210929, end: 20211020
  3. PANTOPRAZOLE [Concomitant]
     Active Substance: PANTOPRAZOLE
     Indication: Prophylaxis
     Dosage: ONGOING
     Route: 065
  4. PHENPROCOUMON [Concomitant]
     Active Substance: PHENPROCOUMON
     Indication: Cerebrovascular disorder
     Dosage: 3 MG AS NEEDED (PRN)
     Route: 065
     Dates: start: 20211128
  5. PHENPROCOUMON [Concomitant]
     Active Substance: PHENPROCOUMON
     Indication: Cardiovascular disorder
  6. AMIODARONE [Concomitant]
     Active Substance: AMIODARONE
     Indication: Cardiovascular disorder
  7. AMIODARONE [Concomitant]
     Active Substance: AMIODARONE
     Indication: Cerebrovascular disorder
  8. TORSEMIDE [Concomitant]
     Active Substance: TORSEMIDE
     Indication: Cardiovascular disorder
     Route: 065
  9. TORSEMIDE [Concomitant]
     Active Substance: TORSEMIDE
     Indication: Cerebrovascular disorder
  10. SIMVASTATIN [Concomitant]
     Active Substance: SIMVASTATIN
     Indication: Product used for unknown indication
     Route: 065
  11. APIXABAN [Concomitant]
     Active Substance: APIXABAN
     Indication: Cardiovascular disorder
     Route: 065
     Dates: start: 20211129
  12. APIXABAN [Concomitant]
     Active Substance: APIXABAN
     Indication: Cerebrovascular disorder
  13. EPLERENONE [Concomitant]
     Active Substance: EPLERENONE
     Indication: Cardiovascular disorder
     Dosage: BIW
     Route: 065
     Dates: start: 20211129
  14. EPLERENONE [Concomitant]
     Active Substance: EPLERENONE
     Indication: Cerebrovascular disorder

REACTIONS (1)
  - Herpes zoster [Recovered/Resolved]

NARRATIVE: CASE EVENT DATE: 20220723
